FAERS Safety Report 10072058 (Version 2)
Quarter: 2014Q2

REPORT INFORMATION
  Report Type: Spontaneous
  Country: US (occurrence: US)
  Receive Date: 20140411
  Receipt Date: 20140429
  Transmission Date: 20141212
  Serious: Yes (Hospitalization, Other)
  Sender: FDA-Public Use
  Company Number: US-009507513-1404USA000091

PATIENT
  Age: 34 Year
  Sex: Female

DRUGS (10)
  1. PROVENTIL [Suspect]
     Indication: ATYPICAL PNEUMONIA
     Dosage: 90 MICROGRAM, 2 TIMES (TWO PUFFS OF 90 ?G)
     Route: 055
  2. PROVENTIL [Suspect]
     Indication: BRONCHITIS
  3. METHYLPREDNISOLONE SODIUM SUCCINATE [Concomitant]
     Indication: BRONCHITIS
  4. METHYLPREDNISOLONE SODIUM SUCCINATE [Concomitant]
     Indication: ATYPICAL PNEUMONIA
  5. SPIRONOLACTONE [Concomitant]
     Indication: PROPHYLAXIS
     Dosage: 100 MG, QD
  6. FLUOXETINE [Concomitant]
     Dosage: 20 MG, QD
  7. AMITRIPTYLINE HYDROCHLORIDE [Concomitant]
     Dosage: 10 MG, QD
  8. VITAMINS (UNSPECIFIED) [Concomitant]
  9. CEFIXIME [Concomitant]
     Indication: ATYPICAL PNEUMONIA
     Dosage: 400 MG, QD
     Route: 048
  10. CEFIXIME [Concomitant]
     Indication: BRONCHITIS

REACTIONS (1)
  - Paralysis [Recovered/Resolved]
